FAERS Safety Report 9359381 (Version 2)
Quarter: 2013Q3

REPORT INFORMATION
  Report Type: Spontaneous
  Country: ES (occurrence: ES)
  Receive Date: 20130620
  Receipt Date: 20130710
  Transmission Date: 20140515
  Serious: Yes (Other)
  Sender: FDA-Public Use
  Company Number: ES-FRI-1000046034

PATIENT
  Age: 80 Year
  Sex: Male
  Weight: 73 kg

DRUGS (1)
  1. ACLIDINIUM [Suspect]
     Indication: BRONCHOSPASM
     Dosage: 644 MCG
     Route: 055
     Dates: start: 20130408, end: 20130408

REACTIONS (2)
  - Urinary retention [Recovered/Resolved]
  - Anuria [Recovered/Resolved]
